FAERS Safety Report 7416205-1 (Version None)
Quarter: 2011Q2

REPORT INFORMATION
  Report Type: 
  Country: None (occurrence: None)
  Receive Date: 20110414
  Receipt Date: 20110404
  Transmission Date: 20111010
  Serious: Yes (Other)
  Sender: FDA-Public Use
  Company Number: US-JNJFOC-20110405019

PATIENT
  Sex: Female

DRUGS (2)
  1. EXTRA STRENGTH TYLENOL [Suspect]
     Indication: HEADACHE
     Dosage: 3000-4000MG PER DAY
     Route: 048
  2. EXTRA STRENGTH TYLENOL [Suspect]
     Route: 048

REACTIONS (1)
  - CENTRAL NERVOUS SYSTEM LESION [None]
